FAERS Safety Report 8259294-7 (Version None)
Quarter: 2012Q2

REPORT INFORMATION
  Report Type: 
  Country: None (occurrence: None)
  Receive Date: 20120404
  Receipt Date: 20120326
  Transmission Date: 20120825
  Serious: Yes (Hospitalization, Other)
  Sender: FDA-Public Use
  Company Number: FR-ASTRAZENECA-2012SE21220

PATIENT
  Age: 36 Year
  Sex: Male

DRUGS (7)
  1. MEROPENEM [Suspect]
     Route: 042
     Dates: start: 20120215, end: 20120224
  2. VANCOMYCIN [Suspect]
     Route: 042
     Dates: start: 20120212, end: 20120220
  3. PIPERACILLIN AND TAZOBACTAM [Concomitant]
     Dates: start: 20120203, end: 20120217
  4. VFEND [Suspect]
     Indication: ASPERGILLOSIS
     Route: 065
     Dates: start: 20120213, end: 20120224
  5. HYDREA [Concomitant]
     Dates: start: 20120127
  6. CANDIDAS [Concomitant]
     Dates: start: 20120215, end: 20120217
  7. FASTURTEC [Concomitant]
     Dates: start: 20120127

REACTIONS (9)
  - CENTRAL NERVOUS SYSTEM LESION [None]
  - OVERDOSE [None]
  - HALLUCINATION, VISUAL [None]
  - HALLUCINATION, AUDITORY [None]
  - SUBDURAL EFFUSION [None]
  - COMA [None]
  - RASH MACULO-PAPULAR [None]
  - DERMATITIS EXFOLIATIVE [None]
  - HYPOTENSION [None]
